FAERS Safety Report 8534649-1 (Version None)
Quarter: 2012Q3

REPORT INFORMATION
  Report Type: 
  Country: None (occurrence: None)
  Receive Date: 20120724
  Receipt Date: 20120718
  Transmission Date: 20120928
  Serious: Yes (Hospitalization)
  Sender: FDA-Public Use
  Company Number: DE-ABBOTT-12P-062-0957761-00

PATIENT
  Sex: Male
  Weight: 90 kg

DRUGS (2)
  1. TRUVADA [Suspect]
     Indication: PRODUCT USED FOR UNKNOWN INDICATION
     Dates: start: 20110308
  2. KALETRA [Suspect]
     Indication: HIV INFECTION
     Dates: start: 20110308

REACTIONS (1)
  - SYNCOPE [None]
